FAERS Safety Report 18983282 (Version 2)
Quarter: 2021Q1

REPORT INFORMATION
  Report Type: Other
  Country: JP (occurrence: JP)
  Receive Date: 20210309
  Receipt Date: 20210311
  Transmission Date: 20210420
  Serious: Yes (Death, Hospitalization)
  Sender: FDA-Public Use
  Company Number: JP-ROCHE-2784632

PATIENT
  Age: 68 Year
  Sex: Female

DRUGS (1)
  1. TECENTRIQ [Suspect]
     Active Substance: ATEZOLIZUMAB
     Indication: LUNG NEOPLASM MALIGNANT
     Route: 041

REACTIONS (5)
  - Decreased appetite [Unknown]
  - Vomiting [Unknown]
  - Death [Fatal]
  - Dehydration [Recovering/Resolving]
  - Renal failure [Recovering/Resolving]
